FAERS Safety Report 20676972 (Version 1)
Quarter: 2022Q2

REPORT INFORMATION
  Report Type: Spontaneous
  Country: US (occurrence: US)
  Receive Date: 20220406
  Receipt Date: 20220406
  Transmission Date: 20220720
  Serious: Yes (Other)
  Sender: FDA-Public Use
  Company Number: US-JNJFOC-20220404313

PATIENT
  Age: 71 Year
  Sex: Female
  Weight: 164 kg

DRUGS (3)
  1. XARELTO [Suspect]
     Active Substance: RIVAROXABAN
     Indication: Atrial fibrillation
     Route: 048
     Dates: start: 201905
  2. XARELTO [Suspect]
     Active Substance: RIVAROXABAN
     Indication: Cerebrovascular accident prophylaxis
  3. XARELTO [Suspect]
     Active Substance: RIVAROXABAN
     Indication: Cardiac septal defect

REACTIONS (1)
  - Haemorrhage urinary tract [Not Recovered/Not Resolved]

NARRATIVE: CASE EVENT DATE: 20220226
